FAERS Safety Report 7440872-X (Version None)
Quarter: 2011Q2

REPORT INFORMATION
  Report Type: 
  Country: None (occurrence: None)
  Receive Date: 20110427
  Receipt Date: 20100909
  Transmission Date: 20111010
  Serious: Yes (Hospitalization, Disabling, Other)
  Sender: FDA-Public Use
  Company Number: US-BAYER-200942369NA

PATIENT
  Age: 29 Year
  Sex: Female

DRUGS (12)
  1. YAZ [Suspect]
  2. SUMATRIPTAN [Concomitant]
     Indication: MIGRAINE
     Dosage: UNK
     Dates: start: 20090401
  3. YASMIN [Suspect]
     Indication: PREMENSTRUAL SYNDROME
  4. YASMIN [Suspect]
  5. VALIUM [Concomitant]
     Dosage: 5 MG, UNK
  6. ZOLOFT [Concomitant]
     Dosage: 50 MG, UNK
  7. HYDROCODONE [Concomitant]
  8. PROMETHASIN [Concomitant]
  9. NSAID'S [Concomitant]
     Dosage: UNK UNK, PRN
  10. YAZ [Suspect]
     Indication: PREMENSTRUAL SYNDROME
  11. YASMIN [Suspect]
     Indication: CONTRACEPTION
     Dosage: UNK
     Dates: start: 20090421
  12. YAZ [Suspect]
     Indication: CONTRACEPTION
     Dates: start: 20090421

REACTIONS (6)
  - OEDEMA PERIPHERAL [None]
  - CHEST PAIN [None]
  - NECK PAIN [None]
  - PAIN [None]
  - HYPOAESTHESIA [None]
  - DEEP VEIN THROMBOSIS [None]
